FAERS Safety Report 6209412-7 (Version None)
Quarter: 2009Q2

REPORT INFORMATION
  Report Type: 
  Country: None (occurrence: None)
  Receive Date: 20090529
  Receipt Date: 20090514
  Transmission Date: 20091009
  Serious: Yes (Death)
  Sender: FDA-Public Use
  Company Number: GR-GENENTECH-274430

PATIENT

DRUGS (6)
  1. BEVACIZUMAB [Suspect]
     Indication: COLORECTAL CANCER
     Dosage: 7.5 MG/KG, Q21D
     Route: 065
  2. CAPECITABINE [Suspect]
     Indication: COLORECTAL CANCER
     Dosage: 1800 MG/M2, Q21D
     Route: 065
  3. IRINOTECAN HCL [Suspect]
     Indication: COLORECTAL CANCER
     Dosage: 220 MG/M2, Q21D
     Route: 065
  4. DEXAMETHASONE 4MG TAB [Concomitant]
     Indication: PREMEDICATION
  5. ATROPINE [Concomitant]
     Indication: PREMEDICATION
  6. TACROLIMUS [Concomitant]
     Indication: DRUG USE FOR UNKNOWN INDICATION

REACTIONS (1)
  - HEPATIC FAILURE [None]
